FAERS Safety Report 12130363 (Version 1)
Quarter: 2016Q1

REPORT INFORMATION
  Report Type: Spontaneous
  Country: US (occurrence: US)
  Receive Date: 20160229
  Receipt Date: 20160229
  Transmission Date: 20160526
  Serious: No
  Sender: FDA-Public Use
  Company Number: US-ACORDA-ACO_22871_2010

PATIENT
  Age: 36 Year
  Sex: Female
  Weight: 53 kg

DRUGS (5)
  1. AMPYRA [Suspect]
     Active Substance: DALFAMPRIDINE
     Indication: MULTIPLE SCLEROSIS
     Dosage: 10MG Q12 HOURS
     Route: 048
     Dates: start: 20100418, end: 20100419
  2. REBIF INJECTION [Concomitant]
     Dosage: DF
  3. MULTIVITAMIN [Concomitant]
     Active Substance: VITAMINS
     Dosage: DF
  4. NEURONTIN [Concomitant]
     Active Substance: GABAPENTIN
     Dosage: DF
  5. VITAMIN D [Concomitant]
     Active Substance: CHOLECALCIFEROL
     Dosage: 5,000 UNITS

REACTIONS (8)
  - Drug ineffective [Recovered/Resolved]
  - Balance disorder [Recovered/Resolved]
  - Nausea [Recovered/Resolved]
  - Walking aid user [Unknown]
  - Headache [Recovered/Resolved]
  - Malaise [Unknown]
  - Product quality issue [Recovered/Resolved]
  - Dizziness [Unknown]

NARRATIVE: CASE EVENT DATE: 201004
